FAERS Safety Report 8114012-8 (Version None)
Quarter: 2012Q1

REPORT INFORMATION
  Report Type: 
  Country: None (occurrence: None)
  Receive Date: 20120203
  Receipt Date: 20120125
  Transmission Date: 20120608
  Serious: Yes (Hospitalization, Other)
  Sender: FDA-Public Use
  Company Number: US-ASTRAZENECA-2010SE49058

PATIENT
  Age: 53 Year
  Sex: Female

DRUGS (3)
  1. NEXIUM [Suspect]
     Indication: GASTROOESOPHAGEAL REFLUX DISEASE
     Route: 048
  2. NEXIUM [Suspect]
     Route: 048
  3. PRILOSEC [Suspect]
     Route: 048

REACTIONS (9)
  - DRUG EFFECT DECREASED [None]
  - DRUG DOSE OMISSION [None]
  - APHAGIA [None]
  - PAIN [None]
  - CONDITION AGGRAVATED [None]
  - DYSPHAGIA [None]
  - WEIGHT DECREASED [None]
  - HAEMATEMESIS [None]
  - ULCER [None]
